FAERS Safety Report 17754444 (Version 2)
Quarter: 2020Q2

REPORT INFORMATION
  Report Type: Spontaneous
  Country: US (occurrence: US)
  Receive Date: 20200506
  Receipt Date: 20200527
  Transmission Date: 20200714
  Serious: Yes (Death)
  Sender: FDA-Public Use
  Company Number: US-VIFOR (INTERNATIONAL) INC.-VIT-2020-05650

PATIENT
  Age: 82 Year
  Sex: Female
  Weight: 49.03 kg

DRUGS (8)
  1. SODIUM BICARBONATE. [Concomitant]
     Active Substance: SODIUM BICARBONATE
     Dosage: 650 MG, 2 TABLETS 3 TIMES A DAY
  2. OMEPRAZOLE. [Concomitant]
     Active Substance: OMEPRAZOLE
  3. AMLODIPINE [Concomitant]
     Active Substance: AMLODIPINE BESYLATE
  4. ZOLOFT [Concomitant]
     Active Substance: SERTRALINE HYDROCHLORIDE
  5. CALCIUM ACETATE. [Concomitant]
     Active Substance: CALCIUM ACETATE
     Dosage: 667 MG, 3 TABLETS, 3 TIMES A DAY
  6. VELTASSA [Suspect]
     Active Substance: PATIROMER
     Indication: HYPERKALAEMIA
     Route: 065
     Dates: start: 2019, end: 2019
  7. SEROQUEL [Concomitant]
     Active Substance: QUETIAPINE FUMARATE
     Dosage: AT BED TIME
  8. LABETALOL [Concomitant]
     Active Substance: LABETALOL\LABETALOL HYDROCHLORIDE

REACTIONS (1)
  - Death [Fatal]

NARRATIVE: CASE EVENT DATE: 20190608
